FAERS Safety Report 6292649-9 (Version None)
Quarter: 2009Q3

REPORT INFORMATION
  Report Type: 
  Country: None (occurrence: None)
  Receive Date: 20090729
  Receipt Date: 20090720
  Transmission Date: 20100115
  Serious: Yes (Other)
  Sender: FDA-Public Use
  Company Number: ADR10992009

PATIENT
  Age: 65 Year
  Sex: Female

DRUGS (8)
  1. AMLODIPINE [Suspect]
     Indication: BLOOD PRESSURE
     Dosage: 5 MG/DAY ORAL
     Route: 048
  2. OMEPRAZOLE [Concomitant]
  3. SERETIDE (FLUTICASONE/SALMETEROL) [Concomitant]
  4. SINGULAIR [Concomitant]
  5. VENTOLIN [Concomitant]
  6. DIHYDROCODEINE BITARTRATE INJ [Concomitant]
  7. TRIAMCINOLONE [Concomitant]
  8. UNKNOWN DRUG [Concomitant]

REACTIONS (4)
  - ASTHMA [None]
  - CONDITION AGGRAVATED [None]
  - COUGH [None]
  - INCREASED UPPER AIRWAY SECRETION [None]
